FAERS Safety Report 5536790-4 (Version None)
Quarter: 2007Q4

REPORT INFORMATION
  Report Type: 
  Country: None (occurrence: None)
  Receive Date: 20071206
  Receipt Date: 20070410
  Transmission Date: 20080405
  Serious: Yes (Hospitalization)
  Sender: FDA-Public Use
  Company Number: US-AMGEN-STX218829

PATIENT
  Sex: Female

DRUGS (2)
  1. ENBREL [Suspect]
     Indication: RHEUMATOID ARTHRITIS
     Route: 065
     Dates: start: 20070301, end: 20070401
  2. ENBREL [Suspect]
     Route: 065
     Dates: start: 20070301, end: 20070401

REACTIONS (1)
  - MYOCARDIAL INFARCTION [None]
